FAERS Safety Report 18521947 (Version 1)
Quarter: 2020Q4

REPORT INFORMATION
  Report Type: Spontaneous
  Country: US (occurrence: US)
  Receive Date: 20201119
  Receipt Date: 20201119
  Transmission Date: 20210114
  Serious: No
  Sender: FDA-Public Use
  Company Number: US-TEVA-2020-US-1850284

PATIENT
  Age: 58 Year
  Sex: Female

DRUGS (7)
  1. ADVIL MIGRAI CAP 200MG [Concomitant]
  2. D3 TAB 2000 UNIT [Concomitant]
  3. FOLIC ACID TAB 800 MCG [Concomitant]
  4. ADVIL CAP 200MG [Concomitant]
  5. VITAMIN C TAB 500MG [Concomitant]
  6. COPAXONE [Suspect]
     Active Substance: GLATIRAMER ACETATE
     Dosage: FREQUENCY: 3 : TIMES WEEKLY
     Route: 058
     Dates: start: 20140903
  7. METHOTREXATE TAB 2.5 MG [Concomitant]
     Route: 065

REACTIONS (1)
  - Injection site reaction [Not Recovered/Not Resolved]
